FAERS Safety Report 4722031-4 (Version None)
Quarter: 2005Q3

REPORT INFORMATION
  Report Type: 
  Country: None (occurrence: None)
  Receive Date: 20050722
  Receipt Date: 20050310
  Transmission Date: 20060218
  Serious: Yes (Life-Threatening, Hospitalization)
  Sender: FDA-Public Use
  Company Number: DE-ROCHE-398368

PATIENT
  Age: 44 Year
  Sex: Female

DRUGS (59)
  1. VALIUM [Suspect]
     Indication: SEDATION
     Route: 065
  2. VALIUM [Suspect]
     Route: 065
     Dates: start: 20050225, end: 20050225
  3. DACLIZUMAB [Suspect]
     Route: 042
     Dates: start: 20050217, end: 20050217
  4. DACLIZUMAB [Suspect]
     Route: 042
     Dates: start: 20050224, end: 20050224
  5. MYCOPHENOLATE MOFETIL [Suspect]
     Route: 042
     Dates: start: 20050217, end: 20050222
  6. MYCOPHENOLATE MOFETIL [Suspect]
     Dosage: SWITCH FROM IV TO ORAL - NO DOSE CHANGE.
     Route: 048
     Dates: start: 20050223, end: 20050307
  7. MYCOPHENOLATE MOFETIL [Suspect]
     Dosage: TREATMENT OF REJECTION. 1000MG IN THE MORNING AND 1500MG IN THE EVENING.
     Route: 048
     Dates: start: 20050308, end: 20050308
  8. MYCOPHENOLATE MOFETIL [Suspect]
     Dosage: NEW MAINTENANCE DOSE BECAUSE OF REJECTION.
     Route: 048
     Dates: start: 20050309, end: 20050315
  9. MYCOPHENOLATE MOFETIL [Suspect]
     Dosage: RETURN TOWARDS PER PROTOCOL DOSE.
     Route: 048
     Dates: start: 20050316, end: 20050609
  10. MYCOPHENOLATE MOFETIL [Suspect]
     Dosage: RETURN TOWARDS PROTOCOL DOSE.
     Route: 048
     Dates: start: 20050613
  11. TACROLIMUS [Suspect]
     Dosage: DOSE ADJUSTED TO REACH PREDEFINED TARGET LEVELS.
     Route: 048
     Dates: start: 20050222, end: 20050308
  12. TACROLIMUS [Suspect]
     Dosage: 5.5MG DOSE: 2.5MG AND 3MG. NEW MAINTENANCE DOSE BECAUSE OF REJECTION.
     Route: 048
     Dates: start: 20050309, end: 20050321
  13. TACROLIMUS [Suspect]
     Dosage: 7MG DOSE: 3MG AND 4MG. DOSE ADJUSTED TO REACH PREDEFINED TARGET LEVELS.
     Route: 048
     Dates: start: 20050322
  14. METHYLPREDNISOLONE [Suspect]
     Route: 065
     Dates: start: 20050217, end: 20050217
  15. METHYLPREDNISOLONE [Suspect]
     Dosage: TREATMENT OF REJECTION.
     Route: 065
     Dates: start: 20050307, end: 20050309
  16. PREDNISONE [Suspect]
     Dosage: TAPER ACCORDING TO LOCAL PROTOCOL.
     Route: 065
     Dates: start: 20050218, end: 20050425
  17. ACETYLCYSTEINE [Concomitant]
     Dates: start: 20050222, end: 20050306
  18. NOREPINEPHRINE HCL [Concomitant]
     Dates: start: 20050217, end: 20050219
  19. ANTITHROMBIN III [Concomitant]
     Indication: THROMBOSIS PROPHYLAXIS
     Dates: start: 20050217, end: 20050219
  20. SULFAMETHOXAZOLE + TRIMETHOPRIM [Concomitant]
     Dates: start: 20050218
  21. METOPROLOL SUCCINATE [Concomitant]
     Indication: HYPERTENSION
     Dates: start: 20050222
  22. NADROPARIN [Concomitant]
     Indication: THROMBOSIS PROPHYLAXIS
     Dates: start: 20050222, end: 20050315
  23. ALBUMIN (HUMAN) [Concomitant]
     Indication: ILL-DEFINED DISORDER
     Dates: start: 20050219, end: 20050227
  24. HEPARIN [Concomitant]
     Indication: HAEMORRHAGE
     Dates: start: 20050225, end: 20050227
  25. FUROSEMIDE [Concomitant]
     Indication: DIURETIC THERAPY
     Dates: start: 20050218, end: 20050305
  26. BROMAZEPAM [Concomitant]
     Indication: ANXIETY
     Dates: start: 20050224, end: 20050304
  27. NYSTATIN [Concomitant]
     Indication: PROPHYLAXIS
     Dates: start: 20050217, end: 20050315
  28. METAMIZOL [Concomitant]
     Dates: start: 20050222, end: 20050228
  29. PANTOPRAZOL [Concomitant]
     Indication: PROPHYLAXIS
     Dates: start: 20050217, end: 20050512
  30. CLONIDIN [Concomitant]
     Dates: start: 20050218, end: 20050226
  31. SUCRALFAT [Concomitant]
     Indication: PROPHYLAXIS
     Dates: start: 20050223, end: 20050315
  32. MUPIROCIN [Concomitant]
     Indication: PROPHYLAXIS
     Dates: start: 20050217, end: 20050315
  33. VALGANCICLOVIR [Concomitant]
     Indication: PROPHYLAXIS
     Route: 065
     Dates: start: 20050222
  34. PIRITRAMID [Concomitant]
     Indication: ANAESTHETIC PREMEDICATION
     Dates: start: 20050217, end: 20050226
  35. GLYCEROLTRINITRAT [Concomitant]
     Dates: start: 20050222, end: 20050222
  36. DOXEPIN HCL [Concomitant]
     Indication: DEPRESSION
     Dates: start: 20050223, end: 20050315
  37. CALCITRIOL [Concomitant]
     Indication: OSTEOPOROSIS PROPHYLAXIS
     Dates: start: 20050513
  38. CALCIUM GLUCONATE [Concomitant]
     Dates: start: 20050217, end: 20050218
  39. CEFOTAXIM [Concomitant]
     Indication: INFECTION PROPHYLAXIS
     Dates: start: 20050217, end: 20050219
  40. METRONIDAZOLE [Concomitant]
     Indication: INFECTION PROPHYLAXIS
     Dates: start: 20050217, end: 20050219
  41. GANCICLOVIR [Concomitant]
     Dates: start: 20050218, end: 20050222
  42. PROPOFOL [Concomitant]
     Dates: start: 20050217, end: 20050217
  43. BLOOD, PACKED RED CELLS [Concomitant]
     Dates: start: 20050218, end: 20050219
  44. FRESH FROZEN PLASMA [Concomitant]
     Dates: start: 20050218, end: 20050218
  45. INSULIN [Concomitant]
     Dates: start: 20050217, end: 20050221
  46. POTASSIUM CHLORIDE [Concomitant]
     Dates: start: 20050217, end: 20050227
  47. GRANISETRON HCL [Concomitant]
     Indication: VOMITING
     Dates: start: 20050221, end: 20050221
  48. METOCLOPRAMID-HCL [Concomitant]
     Dates: start: 20050219, end: 20050221
  49. 1 CONCOMITANT DRUG [Concomitant]
     Dosage: DRUG REPORTED AS AMBRAXOL.
     Dates: start: 20050217, end: 20050221
  50. FUROSEMIDE/SPIRONOLACTONE [Concomitant]
     Dates: start: 20050217, end: 20050220
  51. TRAMADOL HCL [Concomitant]
     Dates: start: 20050228, end: 20050228
  52. APROTININ [Concomitant]
     Dates: start: 20050217, end: 20050218
  53. TORSEMIDE [Concomitant]
     Dates: start: 20050307, end: 20050307
  54. VALERIAN [Concomitant]
     Dates: start: 20050222, end: 20050222
  55. DICLOFENAC SODIUM [Concomitant]
     Dates: start: 20050308, end: 20050308
  56. NORMOFUNDIN [Concomitant]
     Dates: start: 20050217, end: 20050221
  57. TPN ELECTROLYTES IN PLASTIC CONTAINER [Concomitant]
     Dates: start: 20050219, end: 20050220
  58. FLUMAZENIL [Concomitant]
     Dates: start: 20050225, end: 20050225
  59. INTESTAMIN [Concomitant]
     Dates: start: 20050218, end: 20050219

REACTIONS (13)
  - ANGINA PECTORIS [None]
  - ANXIETY [None]
  - BLOOD ALKALINE PHOSPHATASE INCREASED [None]
  - DEPRESSION [None]
  - GAMMA-GLUTAMYLTRANSFERASE INCREASED [None]
  - GLUTAMATE DEHYDROGENASE INCREASED [None]
  - HEPATIC ENZYME ABNORMAL [None]
  - LIVER TRANSPLANT REJECTION [None]
  - OXYGEN SATURATION DECREASED [None]
  - PLEURAL EFFUSION [None]
  - POST PROCEDURAL COMPLICATION [None]
  - RESPIRATORY DEPRESSION [None]
  - SOMNOLENCE [None]
